FAERS Safety Report 9899703 (Version 2)
Quarter: 2014Q1

REPORT INFORMATION
  Report Type: Spontaneous
  Country: US (occurrence: US)
  Receive Date: 20140214
  Receipt Date: 20140214
  Transmission Date: 20141002
  Serious: No
  Sender: FDA-Public Use
  Company Number: US-GILEAD-2011-0048106

PATIENT
  Age: 82 Year
  Sex: Female

DRUGS (1)
  1. LETAIRIS [Suspect]
     Indication: PRODUCT USED FOR UNKNOWN INDICATION
     Dosage: 10 MG,
     Route: 048
     Dates: start: 20080619

REACTIONS (6)
  - Influenza like illness [Unknown]
  - Unevaluable event [Unknown]
  - Diarrhoea [Unknown]
  - Balance disorder [Unknown]
  - Fall [Unknown]
  - Abdominal pain upper [Unknown]
